FAERS Safety Report 23381834 (Version 1)
Quarter: 2024Q1

REPORT INFORMATION
  Report Type: Spontaneous
  Country: US (occurrence: US)
  Receive Date: 20240109
  Receipt Date: 20240109
  Transmission Date: 20240410
  Serious: Yes (Death, Hospitalization)
  Sender: FDA-Public Use
  Company Number: US-BAYER-2024A002291

PATIENT
  Age: 87 Year
  Sex: Male

DRUGS (5)
  1. ASPIRIN [Suspect]
     Active Substance: ASPIRIN
     Route: 048
  2. METOPROLOL [Suspect]
     Active Substance: METOPROLOL
  3. CARBAMAZEPINE [Suspect]
     Active Substance: CARBAMAZEPINE
  4. LISINOPRIL [Suspect]
     Active Substance: LISINOPRIL
  5. LOVASTATIN [Suspect]
     Active Substance: LOVASTATIN

REACTIONS (2)
  - Product administration error [Fatal]
  - Toxicity to various agents [Fatal]
